FAERS Safety Report 23044546 (Version 1)
Quarter: 2023Q4

REPORT INFORMATION
  Report Type: Spontaneous
  Country: PL (occurrence: PL)
  Receive Date: 20231009
  Receipt Date: 20231009
  Transmission Date: 20240109
  Serious: Yes (Other)
  Sender: FDA-Public Use
  Company Number: None

PATIENT
  Age: 62 Year
  Sex: Male
  Weight: 70 kg

DRUGS (4)
  1. OXALIPLATIN [Suspect]
     Active Substance: OXALIPLATIN
     Indication: Rectal cancer
     Dosage: THERAPY ONGOING.
     Dates: start: 20190115
  2. AVASTIN [Suspect]
     Active Substance: BEVACIZUMAB
     Indication: Rectal cancer
     Dosage: DOSE: 700 UNITS UNKNOWN. THERAPY ONGOING.
     Dates: start: 20190115
  3. FLUOROURACIL [Suspect]
     Active Substance: FLUOROURACIL
     Indication: Rectal cancer
     Dosage: DOSE: 3058 UNITS UNKNOWN. THERAPY ONGOING.
     Dates: start: 20190115
  4. LEVOLEUCOVORIN [Concomitant]
     Active Substance: LEVOLEUCOVORIN
     Indication: Rectal cancer
     Dosage: DOSE: 382 UNITS UNKNOWN. THERAPY ONGOING.
     Dates: start: 20190115

REACTIONS (2)
  - Neutropenia [Recovering/Resolving]
  - Gastritis [Recovering/Resolving]

NARRATIVE: CASE EVENT DATE: 20190514
